FAERS Safety Report 11795370 (Version 1)
Quarter: 2015Q4

REPORT INFORMATION
  Report Type: Spontaneous
  Country: IE (occurrence: IE)
  Receive Date: 20151202
  Receipt Date: 20151202
  Transmission Date: 20160305
  Serious: Yes (Hospitalization)
  Sender: FDA-Public Use
  Company Number: IE-BAXTER-2015BAX062965

PATIENT
  Age: 55 Year
  Sex: Female

DRUGS (17)
  1. SODIUM CHLORIDE. [Suspect]
     Active Substance: SODIUM CHLORIDE
     Indication: PARENTERAL NUTRITION
     Dosage: NIGHTLY
     Route: 065
  2. SELENIUM [Suspect]
     Active Substance: SELENIUM
     Indication: PARENTERAL NUTRITION
     Dosage: NIGHTLY
     Route: 065
  3. WATER FOR INJECTION [Suspect]
     Active Substance: WATER
     Dosage: NIGHTLY
     Route: 065
  4. IRON CHLORIDE [Suspect]
     Active Substance: FERRIC CHLORIDE
     Indication: PARENTERAL NUTRITION
     Dosage: 1.79 UMOL/ML, NIGHTLY
     Route: 065
  5. GLUCOSE 50% W/V CONCENTRATE FOR SOLUTION FOR INFUSION [Suspect]
     Active Substance: DEXTROSE
     Dosage: NIGHTLY
     Route: 065
  6. ZINC SULFATE [Suspect]
     Active Substance: ZINC SULFATE\ZINC SULFATE ANHYDROUS
     Indication: PARENTERAL NUTRITION
     Dosage: 50 UMOL/ML, NIGHTLY
     Route: 065
  7. SELENIUM [Suspect]
     Active Substance: SELENIUM
     Dosage: NIGHTLY
     Route: 065
  8. ADDITRACE [Suspect]
     Active Substance: MINERALS
     Indication: PARENTERAL NUTRITION
     Dosage: NIGHTLY
     Route: 065
  9. SYNTHAMIN [Suspect]
     Active Substance: AMINO ACIDS
     Indication: PARENTERAL NUTRITION
     Dosage: NIGHTLY
     Route: 065
  10. GLUCOSE 50% W/V CONCENTRATE FOR SOLUTION FOR INFUSION [Suspect]
     Active Substance: DEXTROSE
     Indication: PARENTERAL NUTRITION
     Dosage: NIGHTLY
     Route: 065
  11. SOLIVITO N [Suspect]
     Active Substance: ASCORBIC ACID\BIOTIN\CYANOCOBALAMIN\FOLIC ACID\NIACINAMIDE\PANTOTHENIC ACID\PYRIDOXINE\RIBOFLAVIN\THIAMINE
     Indication: PARENTERAL NUTRITION
     Dosage: NIGHTLY
     Route: 065
  12. CLINOLEIC 20% [Suspect]
     Active Substance: OLIVE OIL\SOYBEAN OIL
     Indication: PARENTERAL NUTRITION
     Dosage: NIGHTLY
     Route: 065
  13. WATER FOR INJECTION [Suspect]
     Active Substance: WATER
     Indication: PARENTERAL NUTRITION
     Dosage: NIGHTLY
     Route: 065
  14. SODIUM GLYCEROPHOSPHATE [Suspect]
     Active Substance: SODIUM GLYCEROPHOSPHATE
     Indication: PARENTERAL NUTRITION
     Dosage: NIGHTLY
     Route: 065
  15. MAGNESIUM SULPHATE [Suspect]
     Active Substance: MAGNESIUM SULFATE
     Indication: PARENTERAL NUTRITION
     Dosage: NIGHTLY
     Route: 065
  16. POTASSIUM CHLORIDE. [Suspect]
     Active Substance: POTASSIUM CHLORIDE
     Indication: PARENTERAL NUTRITION
     Dosage: NIGHTLY
     Route: 065
  17. CALCIUM CHLORIDE. [Suspect]
     Active Substance: CALCIUM CHLORIDE
     Indication: PARENTERAL NUTRITION
     Dosage: 1 MMOL/ML, NIGHTLY
     Route: 065

REACTIONS (1)
  - Nausea [Not Recovered/Not Resolved]
